FAERS Safety Report 15649629 (Version 1)
Quarter: 2018Q4

REPORT INFORMATION
  Report Type: Spontaneous
  Country: KR (occurrence: KR)
  Receive Date: 20181122
  Receipt Date: 20181122
  Transmission Date: 20190205
  Serious: Yes (Death)
  Sender: FDA-Public Use
  Company Number: KR-ABBVIE-18K-090-2566135-00

PATIENT
  Age: 81 Year

DRUGS (1)
  1. MAVIRET [Suspect]
     Active Substance: GLECAPREVIR\PIBRENTASVIR
     Indication: PRODUCT USED FOR UNKNOWN INDICATION
     Route: 048
     Dates: start: 201811

REACTIONS (3)
  - Blood bilirubin increased [Fatal]
  - Peritonitis [Fatal]
  - Haemorrhage [Fatal]

NARRATIVE: CASE EVENT DATE: 201811
